FAERS Safety Report 8622565-6 (Version None)
Quarter: 2012Q3

REPORT INFORMATION
  Report Type: 
  Country: None (occurrence: None)
  Receive Date: 20120809
  Receipt Date: 20120725
  Transmission Date: 20120928
  Serious: Yes (Hospitalization, Other)
  Sender: FDA-Public Use
  Company Number: 2011MA001481

PATIENT
  Sex: Male
  Weight: 56.6996 kg

DRUGS (31)
  1. AGGRENOX [Concomitant]
  2. LOVASTATIN [Concomitant]
  3. NSAID [Concomitant]
  4. PREDNISONE [Concomitant]
  5. ROBITUSSIN DM [Concomitant]
  6. SPIRIVA [Concomitant]
  7. DARVOCET-N 50 [Concomitant]
  8. IBUPROFEN [Concomitant]
  9. JANUVIA [Concomitant]
  10. POLYETHYLENE GLYCOL [Concomitant]
  11. METOCLOPRAMIDE [Suspect]
     Indication: GASTROOESOPHAGEAL REFLUX DISEASE
     Dosage: 10 MG;QD;PO
     Route: 048
     Dates: start: 20080618, end: 20080913
  12. ASPIRIN [Concomitant]
  13. CIPROFLOXACIN [Concomitant]
  14. METFORMIN HCL [Concomitant]
  15. COMBIVENT [Concomitant]
  16. NOVOLIN 70/30 [Concomitant]
  17. ALBUTEROL [Concomitant]
  18. NEXIUM [Concomitant]
  19. RANITIDINE [Concomitant]
  20. FLUTICASONE PROPIONATE [Concomitant]
  21. COLACE [Concomitant]
  22. FERROUS SULFATE TAB [Concomitant]
  23. GUAIFENESIN DM [Concomitant]
  24. MECLIZINE [Concomitant]
  25. NASONEX [Concomitant]
  26. LEVAQUIN [Concomitant]
  27. SINGULAIR [Concomitant]
  28. TYLENOL [Concomitant]
  29. ALPRAZOLAM [Concomitant]
  30. AVALIDE [Concomitant]
  31. FLUCONAZOLE [Concomitant]

REACTIONS (73)
  - DYSTONIA [None]
  - TENSION HEADACHE [None]
  - NAUSEA [None]
  - CHRONIC OBSTRUCTIVE PULMONARY DISEASE [None]
  - ANAPHYLACTIC REACTION [None]
  - ROTATOR CUFF SYNDROME [None]
  - OESOPHAGITIS [None]
  - DIABETES MELLITUS [None]
  - RESTLESSNESS [None]
  - DIZZINESS [None]
  - PHARYNGITIS [None]
  - FALL [None]
  - OSTEOARTHRITIS [None]
  - UPPER RESPIRATORY TRACT INFECTION [None]
  - DYSPEPSIA [None]
  - RESTLESS LEGS SYNDROME [None]
  - CANDIDIASIS [None]
  - VERTIGO [None]
  - PAIN IN EXTREMITY [None]
  - GASTROOESOPHAGEAL REFLUX DISEASE [None]
  - EAR PAIN [None]
  - TEMPOROMANDIBULAR JOINT SYNDROME [None]
  - NEPHROLITHIASIS [None]
  - INTERVERTEBRAL DISC DISORDER [None]
  - DYSPNOEA [None]
  - URTICARIA [None]
  - GENERALISED ERYTHEMA [None]
  - BACK PAIN [None]
  - DILATATION VENTRICULAR [None]
  - ROAD TRAFFIC ACCIDENT [None]
  - GASTROINTESTINAL MOTILITY DISORDER [None]
  - ATELECTASIS [None]
  - PHARYNGEAL ULCERATION [None]
  - GASTRITIS EROSIVE [None]
  - CEREBRAL ATROPHY [None]
  - ATAXIA [None]
  - HYPOAESTHESIA [None]
  - EXOSTOSIS [None]
  - DISCOMFORT [None]
  - PARAESTHESIA [None]
  - HYDROCEPHALUS [None]
  - CEREBRAL ISCHAEMIA [None]
  - GAIT DISTURBANCE [None]
  - PRODUCTIVE COUGH [None]
  - ECONOMIC PROBLEM [None]
  - MYOCLONUS [None]
  - SINUSITIS [None]
  - DEHYDRATION [None]
  - DIVERTICULUM [None]
  - VOMITING [None]
  - OROPHARYNGEAL PAIN [None]
  - PRURITUS [None]
  - HYPERLIPIDAEMIA [None]
  - DYSPNOEA EXERTIONAL [None]
  - CEREBELLAR INFARCTION [None]
  - SPUTUM DISCOLOURED [None]
  - TREMOR [None]
  - EMOTIONAL DISORDER [None]
  - BRONCHITIS [None]
  - GASTRITIS [None]
  - VASCULAR CALCIFICATION [None]
  - PNEUMONIA [None]
  - HYPERSENSITIVITY [None]
  - HYPERTENSION [None]
  - CONSTIPATION [None]
  - DYSGEUSIA [None]
  - CEREBELLAR SYNDROME [None]
  - PETECHIAE [None]
  - HEADACHE [None]
  - INTERVERTEBRAL DISC PROTRUSION [None]
  - NEURITIS [None]
  - ARTHRALGIA [None]
  - RHINORRHOEA [None]
